FAERS Safety Report 7574406-6 (Version None)
Quarter: 2011Q2

REPORT INFORMATION
  Report Type: 
  Country: None (occurrence: None)
  Receive Date: 20110627
  Receipt Date: 20110110
  Transmission Date: 20111010
  Serious: Yes (Hospitalization, Other)
  Sender: FDA-Public Use
  Company Number: US-BAYER-201033605NA

PATIENT
  Age: 26 Year
  Sex: Female
  Weight: 102 kg

DRUGS (8)
  1. YASMIN [Suspect]
     Indication: ORAL CONTRACEPTION
  2. ADVIL LIQUI-GELS [Concomitant]
     Dosage: UNK UNK, PRN
  3. GLUCOPHAGE [Concomitant]
     Indication: TYPE 2 DIABETES MELLITUS
     Dosage: 850 MG, BID
     Route: 048
     Dates: start: 19990101, end: 20080101
  4. CARBOFED DM SYRUP [Concomitant]
     Dosage: UNK
     Dates: start: 20050216
  5. YASMIN [Suspect]
     Indication: MENSTRUAL CYCLE MANAGEMENT
     Route: 048
     Dates: start: 20040801, end: 20050301
  6. AMOXICILLIN [Concomitant]
     Dosage: UNK
     Dates: start: 20050216
  7. ALBUTEROL SULFATE AUTOHALER [Concomitant]
     Dosage: UNK
     Dates: start: 20050207
  8. ASTHMA/BREATHING MEDICATIONS [Concomitant]

REACTIONS (6)
  - ANXIETY [None]
  - PULMONARY EMBOLISM [None]
  - FEAR [None]
  - HEART RATE INCREASED [None]
  - CHEST PAIN [None]
  - DYSPNOEA [None]
